FAERS Safety Report 8355458-2 (Version None)
Quarter: 2012Q2

REPORT INFORMATION
  Report Type: 
  Country: None (occurrence: None)
  Receive Date: 20120512
  Receipt Date: 20120504
  Transmission Date: 20120825
  Serious: Yes (Other)
  Sender: FDA-Public Use
  Company Number: US-AMGEN-USASP2011037035

PATIENT
  Age: 47 Year
  Sex: Female

DRUGS (3)
  1. ENBREL [Suspect]
  2. ENBREL [Suspect]
     Indication: JUVENILE ARTHRITIS
     Dosage: 50 MG, QWK
     Dates: start: 20100301, end: 20110801
  3. ENBREL [Suspect]
     Indication: RHEUMATOID ARTHRITIS

REACTIONS (17)
  - BLINDNESS [None]
  - DEPRESSION [None]
  - DIZZINESS [None]
  - RHEUMATOID ARTHRITIS [None]
  - RASH [None]
  - CRANIOCEREBRAL INJURY [None]
  - FALL [None]
  - CONVULSION [None]
  - BACK PAIN [None]
  - CLUMSINESS [None]
  - ANAEMIA [None]
  - PYREXIA [None]
  - HEAD INJURY [None]
  - ORAL PAIN [None]
  - MIGRAINE [None]
  - LOSS OF CONSCIOUSNESS [None]
  - STOMATITIS [None]
